FAERS Safety Report 19709508 (Version 1)
Quarter: 2021Q3

REPORT INFORMATION
  Report Type: Report from Study
  Country: US (occurrence: US)
  Receive Date: 20210817
  Receipt Date: 20210817
  Transmission Date: 20211014
  Serious: No
  Sender: FDA-Public Use
  Company Number: US-GW PHARMA-202108USGW03973

PATIENT

DRUGS (1)
  1. EPIDIOLEX [Suspect]
     Active Substance: CANNABIDIOL
     Indication: PRODUCT USED FOR UNKNOWN INDICATION
     Dosage: 13.88 MG/KG/DAY, 800 MILLIGRAM, BID
     Route: 048

REACTIONS (3)
  - Malaise [Unknown]
  - Gait disturbance [Unknown]
  - Seizure [Unknown]

NARRATIVE: CASE EVENT DATE: 20210811
